FAERS Safety Report 7620233-0 (Version None)
Quarter: 2011Q3

REPORT INFORMATION
  Report Type: 
  Country: None (occurrence: None)
  Receive Date: 20110719
  Receipt Date: 20110706
  Transmission Date: 20111222
  Serious: Yes (Hospitalization)
  Sender: FDA-Public Use
  Company Number: PHHY2010TW61213

PATIENT
  Sex: Female
  Weight: 34 kg

DRUGS (7)
  1. CYCLOSPORINE [Concomitant]
     Dosage: 25 MG, 2 TAB/ 1 TAB ID
     Dates: start: 20110317
  2. EXJADE [Suspect]
     Indication: THALASSAEMIA BETA
     Dosage: 1625 MG/DAY
     Route: 048
     Dates: start: 20090916
  3. TAMIFLU [Concomitant]
  4. IMURAN [Concomitant]
  5. MULTI-VITAMINS [Concomitant]
  6. ROCEPHIN [Concomitant]
  7. STEROIDS NOS [Concomitant]
     Dosage: 5 MG, 6QD
     Dates: start: 20110317

REACTIONS (13)
  - GASTROINTESTINAL DISORDER [None]
  - THROMBOCYTOPENIA [None]
  - HAEMATOCHEZIA [None]
  - ABDOMINAL PAIN LOWER [None]
  - CROHN'S DISEASE [None]
  - DIARRHOEA [None]
  - HYPOKALAEMIA [None]
  - GASTROINTESTINAL OEDEMA [None]
  - OEDEMA [None]
  - PANCREATIC DISORDER [None]
  - ABDOMINAL PAIN [None]
  - ABDOMINAL MASS [None]
  - PYREXIA [None]
